FAERS Safety Report 8157197-X (Version None)
Quarter: 2012Q1

REPORT INFORMATION
  Report Type: 
  Country: None (occurrence: None)
  Receive Date: 20120222
  Receipt Date: 20120215
  Transmission Date: 20120608
  Serious: Yes (Disabling, Other)
  Sender: FDA-Public Use
  Company Number: US-BAYER-2011-081009

PATIENT
  Age: 63 Year
  Sex: Male

DRUGS (9)
  1. OXYCODONE HCL [Concomitant]
     Indication: PAIN
     Dosage: 40 MG, TID
     Dates: start: 20090101
  2. NEPHROVITE [VIT C,VIT H,B5,B12,B9,B3,B6,B2,B1 HCL] [Concomitant]
     Indication: NEPHROPATHY
     Dosage: UNK
     Dates: start: 19770101
  3. MAGNEVIST [Suspect]
     Indication: ANGIOGRAM
     Dosage: UNK, ONCE
     Dates: start: 20060717, end: 20060717
  4. IRON [Concomitant]
     Indication: BLOOD IRON DECREASED
  5. MAGNEVIST [Suspect]
  6. LEBACARTON [Concomitant]
     Indication: NEUROLOGICAL SYMPTOM
     Dosage: 330 MG, TID
  7. SENSIPAR [Concomitant]
     Indication: PARATHYROID DISORDER
  8. EPOGEN [Concomitant]
     Indication: NEPHROPATHY
     Dosage: UNK
     Dates: start: 19920101
  9. NORVASC [Concomitant]
     Indication: HYPERTENSION
     Dosage: 2.5 MG, BID
     Dates: start: 20030101

REACTIONS (8)
  - PAIN [None]
  - EMOTIONAL DISTRESS [None]
  - JOINT RANGE OF MOTION DECREASED [None]
  - MOBILITY DECREASED [None]
  - ANHEDONIA [None]
  - NEPHROGENIC SYSTEMIC FIBROSIS [None]
  - ANXIETY [None]
  - MUSCULOSKELETAL STIFFNESS [None]
